FAERS Safety Report 7002089-2 (Version None)
Quarter: 2010Q3

REPORT INFORMATION
  Report Type: 
  Country: None (occurrence: None)
  Receive Date: 20100920
  Receipt Date: 20070905
  Transmission Date: 20110219
  Serious: Yes (Hospitalization, Other)
  Sender: FDA-Public Use
  Company Number: US-ASTRAZENECA-2006UW23882

PATIENT
  Sex: Female
  Weight: 123.4 kg

DRUGS (32)
  1. SEROQUEL [Suspect]
     Indication: DEPRESSION
     Route: 048
     Dates: start: 20021119
  2. SEROQUEL [Suspect]
     Indication: MENTAL DISORDER
     Route: 048
     Dates: start: 20021119
  3. SEROQUEL [Suspect]
     Indication: TACHYPHRENIA
     Route: 048
     Dates: start: 20021119
  4. SEROQUEL [Suspect]
     Indication: SLEEP DISORDER
     Route: 048
     Dates: start: 20021119
  5. SEROQUEL [Suspect]
     Route: 048
     Dates: start: 20040101
  6. SEROQUEL [Suspect]
     Route: 048
     Dates: start: 20040101
  7. SEROQUEL [Suspect]
     Route: 048
     Dates: start: 20040101
  8. SEROQUEL [Suspect]
     Route: 048
     Dates: start: 20040101
  9. SEROQUEL [Suspect]
     Dosage: 100 MG AT MORNING, 100 MG AT NOON AND 600 MG AT NIGHT
     Route: 048
     Dates: start: 20040702
  10. SEROQUEL [Suspect]
     Dosage: 100 MG AT MORNING, 100 MG AT NOON AND 600 MG AT NIGHT
     Route: 048
     Dates: start: 20040702
  11. SEROQUEL [Suspect]
     Dosage: 100 MG AT MORNING, 100 MG AT NOON AND 600 MG AT NIGHT
     Route: 048
     Dates: start: 20040702
  12. SEROQUEL [Suspect]
     Dosage: 100 MG AT MORNING, 100 MG AT NOON AND 600 MG AT NIGHT
     Route: 048
     Dates: start: 20040702
  13. SEROQUEL [Suspect]
     Route: 048
     Dates: start: 20070814
  14. SEROQUEL [Suspect]
     Route: 048
     Dates: start: 20070814
  15. SEROQUEL [Suspect]
     Route: 048
     Dates: start: 20070814
  16. SEROQUEL [Suspect]
     Route: 048
     Dates: start: 20070814
  17. HALDOL [Concomitant]
  18. NAVANE [Concomitant]
  19. ZYPREXA [Concomitant]
     Dates: start: 20021126
  20. LASIX [Concomitant]
     Indication: OEDEMA PERIPHERAL
     Dosage: 20 - 80 MG
     Route: 048
     Dates: start: 20040723
  21. DEPAKOTE [Concomitant]
     Route: 048
     Dates: start: 19980309
  22. PROZAC [Concomitant]
     Dosage: 20 MG - 40 MG
     Route: 048
     Dates: start: 19960214, end: 20021203
  23. PROLIXIN [Concomitant]
     Dosage: 1 MG - 2 MG
     Route: 048
     Dates: start: 19960319
  24. HYDROXYZINE [Concomitant]
     Indication: ANXIETY
     Dosage: 50 MG EVERY FOUR HOURS AS REQUIRED
     Route: 048
     Dates: start: 20021118
  25. HYDROXYZINE [Concomitant]
     Indication: INSOMNIA
     Dosage: 50 MG EVERY FOUR HOURS AS REQUIRED
     Route: 048
     Dates: start: 20021118
  26. CLONAZEPAM [Concomitant]
     Indication: INSOMNIA
     Dosage: 1 MG - 2 MG
     Route: 048
     Dates: start: 19980212
  27. LORAZEPAM [Concomitant]
     Indication: ANXIETY
     Dosage: 1 MG EVERY FOUR HOURS AS REQUIRED
     Route: 048
     Dates: start: 20021118
  28. LORAZEPAM [Concomitant]
     Indication: AGITATION
     Dosage: 1 MG EVERY FOUR HOURS AS REQUIRED
     Route: 048
     Dates: start: 20021118
  29. LORAZEPAM [Concomitant]
     Indication: INSOMNIA
     Dosage: 1 MG EVERY FOUR HOURS AS REQUIRED
     Route: 048
     Dates: start: 20021118
  30. RANITIDINE [Concomitant]
     Indication: GASTROOESOPHAGEAL REFLUX DISEASE
     Route: 048
     Dates: start: 20021211
  31. RISPERIDONE [Concomitant]
     Indication: HALLUCINATION
     Dosage: 1 MG - 2 MG
     Route: 048
     Dates: start: 20050621
  32. PERCOCET [Concomitant]
     Indication: MIGRAINE
     Dosage: 10 MG EVERY SIX HOURS AS REQUIRED
     Route: 048
     Dates: start: 19940101

REACTIONS (2)
  - DIABETES MELLITUS [None]
  - PANCREATITIS [None]
